FAERS Safety Report 18997474 (Version 2)
Quarter: 2023Q1

REPORT INFORMATION
  Report Type: Spontaneous
  Country: JP (occurrence: JP)
  Receive Date: 20210311
  Receipt Date: 20230116
  Transmission Date: 20230418
  Serious: No
  Sender: FDA-Public Use
  Company Number: JP-NOVARTISPH-NVSC2021JP055828

PATIENT
  Sex: Female

DRUGS (2)
  1. RECLAST [Suspect]
     Active Substance: ZOLEDRONIC ACID
     Indication: Product used for unknown indication
     Dosage: 5 MG, ONCE/SINGLE (FIRST DOSE)
     Route: 041
  2. RECLAST [Suspect]
     Active Substance: ZOLEDRONIC ACID
     Dosage: 5 MG ONCE/SINGLE (SECOND DOSE)
     Route: 041

REACTIONS (5)
  - Fall [Unknown]
  - Tooth loss [Unknown]
  - Osteomyelitis [Not Recovered/Not Resolved]
  - Dizziness [Recovered/Resolved]
  - Somnolence [Unknown]
